FAERS Safety Report 9157037 (Version 1)
Quarter: 2013Q1

REPORT INFORMATION
  Report Type: Spontaneous
  Country: US (occurrence: None)
  Receive Date: 20130308
  Receipt Date: 20130308
  Transmission Date: 20140127
  Serious: No
  Sender: FDA-Public Use
  Company Number: None

PATIENT
  Sex: Female
  Weight: 58.97 kg

DRUGS (1)
  1. DEXILANT [Suspect]
     Dates: start: 20120927, end: 20130213

REACTIONS (4)
  - Heart rate increased [None]
  - Ventricular extrasystoles [None]
  - Tremor [None]
  - Throat tightness [None]
